FAERS Safety Report 7036221-1 (Version None)
Quarter: 2010Q4

REPORT INFORMATION
  Report Type: 
  Country: None (occurrence: None)
  Receive Date: 20101008
  Receipt Date: 20100927
  Transmission Date: 20110411
  Serious: Yes (Other)
  Sender: FDA-Public Use
  Company Number: JP-GENZYME-RENA-1000875

PATIENT
  Age: 76 Year
  Sex: Male

DRUGS (1)
  1. RENAGEL [Suspect]
     Indication: HYPERPHOSPHATAEMIA
     Dosage: UNK
     Route: 048
     Dates: start: 20100209, end: 20100504

REACTIONS (1)
  - HAEMORRHAGIC EROSIVE GASTRITIS [None]
